FAERS Safety Report 5862684-0 (Version None)
Quarter: 2008Q3

REPORT INFORMATION
  Report Type: 
  Country: None (occurrence: None)
  Receive Date: 20080828
  Receipt Date: 20080819
  Transmission Date: 20090109
  Serious: Yes (Hospitalization)
  Sender: FDA-Public Use
  Company Number: FR-WYE-H05645208

PATIENT
  Sex: Female

DRUGS (8)
  1. INIPOMP [Suspect]
     Route: 048
     Dates: start: 20080201, end: 20080510
  2. REQUIP [Concomitant]
     Route: 048
  3. CARBIDOPA/ENTACAPONE/LEVODOPA [Suspect]
     Dosage: 150 MG (FREQUENCY UNKNOWN)
     Route: 048
     Dates: start: 20080219, end: 20080510
  4. SINEMET [Concomitant]
     Route: 048
  5. CLOZAPINE [Concomitant]
     Route: 048
     Dates: start: 20080219
  6. XANAX [Concomitant]
     Dosage: UNKNOWN
     Route: 048
     Dates: start: 20080219
  7. DEROXAT [Suspect]
     Route: 048
     Dates: start: 20080219, end: 20080510
  8. IMODIUM [Suspect]
     Dosage: UNKNOWN
     Dates: end: 20080601

REACTIONS (3)
  - CHOLESTASIS [None]
  - CYTOLYTIC HEPATITIS [None]
  - MIXED LIVER INJURY [None]
